FAERS Safety Report 5025018-X (Version None)
Quarter: 2006Q2

REPORT INFORMATION
  Report Type: 
  Country: None (occurrence: None)
  Receive Date: 20060426
  Receipt Date: 20060223
  Transmission Date: 20061013
  Serious: Yes (Other)
  Sender: FDA-Public Use
  Company Number: 2006028570

PATIENT
  Age: 65 Year
  Sex: Female
  Weight: 55.7924 kg

DRUGS (8)
  1. LYRICA [Suspect]
     Indication: GLOSSOPHARYNGEAL NEURALGIA
     Dosage: 100 MG (50 MG, 2 IN 1 D)
     Dates: start: 20060221
  2. CARBAMAZEPINE [Concomitant]
  3. LEVOTHYROXINE SODIUM [Concomitant]
  4. ZOLOFT [Concomitant]
  5. SEMPREX-D (ACRIVASTINE, PSEUDOEPHEDRINE HYDROCHLORIDE) [Concomitant]
  6. LOTREL [Concomitant]
  7. PROTONIX [Concomitant]
  8. ASPIRIN [Concomitant]

REACTIONS (5)
  - DIZZINESS [None]
  - FEELING ABNORMAL [None]
  - FEELING DRUNK [None]
  - PARAESTHESIA [None]
  - VISION BLURRED [None]
